FAERS Safety Report 21035246 (Version 1)
Quarter: 2022Q3

REPORT INFORMATION
  Report Type: Spontaneous
  Country: US (occurrence: None)
  Receive Date: 20220701
  Receipt Date: 20220701
  Transmission Date: 20221026
  Serious: Yes (Hospitalization)
  Sender: FDA-Public Use
  Company Number: None

PATIENT
  Age: 55 Year
  Sex: Female
  Weight: 72.57 kg

DRUGS (1)
  1. SIMVASTATIN [Suspect]
     Active Substance: SIMVASTATIN
     Indication: Pancreatitis
     Dosage: FREQUENCY : DAILY;?
     Route: 048
     Dates: start: 20170307

REACTIONS (8)
  - Pancreatitis relapsing [None]
  - Product dose omission issue [None]
  - Blood bilirubin increased [None]
  - Refusal of treatment by patient [None]
  - Gastritis [None]
  - Pancreatitis acute [None]
  - Hepatic steatosis [None]
  - Drug hypersensitivity [None]

NARRATIVE: CASE EVENT DATE: 20170406
